FAERS Safety Report 12073734 (Version 2)
Quarter: 2016Q2

REPORT INFORMATION
  Report Type: Spontaneous
  Country: IT (occurrence: IT)
  Receive Date: 20160212
  Receipt Date: 20160524
  Transmission Date: 20160815
  Serious: Yes (Congenital Anomaly)
  Sender: FDA-Public Use
  Company Number: IT-TEVA-633360ACC

PATIENT
  Age: 0 Year
  Weight: 2.9 kg

DRUGS (5)
  1. TASIGNA [Suspect]
     Active Substance: NILOTINIB
     Indication: CHRONIC MYELOID LEUKAEMIA
     Dosage: 400 MILLIGRAM DAILY; 400 MG DAILY
     Route: 064
     Dates: start: 20100101, end: 20150728
  2. CIPRALEX [Suspect]
     Active Substance: ESCITALOPRAM OXALATE
     Indication: BIPOLAR DISORDER
     Dosage: 1 DOSAGE FORMS DAILY; 1 DF DAILY
     Route: 064
  3. TAVOR (LORAZEPAM) [Suspect]
     Active Substance: LORAZEPAM
     Indication: BIPOLAR DISORDER
     Dosage: 1 DOSAGE FORMS DAILY; 1 DF DAILY
     Route: 064
  4. TIROSINT [Suspect]
     Active Substance: LEVOTHYROXINE SODIUM
     Indication: POST PROCEDURAL HYPOTHYROIDISM
     Dosage: 150 MICROGRAM DAILY; 150 UG DAILY
     Route: 064
  5. CARBOLITHIUM - TEVA ITALIA S.R.L. [Suspect]
     Active Substance: LITHIUM CARBONATE
     Indication: BIPOLAR DISORDER
     Dosage: 750 MILLIGRAM DAILY; 750 MG DAILY
     Route: 064

REACTIONS (3)
  - Foetal malformation [Not Recovered/Not Resolved]
  - Univentricular heart [Not Recovered/Not Resolved]
  - Foetal exposure during pregnancy [Not Recovered/Not Resolved]

NARRATIVE: CASE EVENT DATE: 20151210
